FAERS Safety Report 13075233 (Version 1)
Quarter: 2016Q4

REPORT INFORMATION
  Report Type: Spontaneous
  Country: US (occurrence: US)
  Receive Date: 20161229
  Receipt Date: 20161229
  Transmission Date: 20170207
  Serious: No
  Sender: FDA-Public Use
  Company Number: None

PATIENT
  Age: 80 Year
  Sex: Female
  Weight: 52.16 kg

DRUGS (4)
  1. LISINOPRIL. [Concomitant]
     Active Substance: LISINOPRIL
  2. ALPHAGAN P [Suspect]
     Active Substance: BRIMONIDINE TARTRATE
     Indication: GLAUCOMA
     Dosage: 1 DROP IN EACH EYE
     Route: 047
     Dates: start: 20161111, end: 20161212
  3. ICAPS [Concomitant]
     Active Substance: MINERALS\VITAMINS
  4. CITRACAL [Concomitant]
     Active Substance: CALCIUM CITRATE

REACTIONS (3)
  - Cough [None]
  - Insomnia [None]
  - Asthma [None]

NARRATIVE: CASE EVENT DATE: 20161117
